FAERS Safety Report 19251701 (Version 1)
Quarter: 2021Q2

REPORT INFORMATION
  Report Type: Spontaneous
  Country: DE (occurrence: DE)
  Receive Date: 20210513
  Receipt Date: 20210513
  Transmission Date: 20210717
  Serious: Yes (Hospitalization)
  Sender: FDA-Public Use
  Company Number: DE-NOVOPROD-804272

PATIENT
  Age: 66 Year
  Sex: Female
  Weight: 66 kg

DRUGS (19)
  1. NOVORAPID [Suspect]
     Active Substance: INSULIN ASPART
     Indication: TYPE 1 DIABETES MELLITUS
     Dosage: 20 IU, QD(THE DAY BEFORE (8 P.M.)
     Route: 058
  2. DEKRISTOL [Concomitant]
     Active Substance: CHOLECALCIFEROL
     Dosage: 20 000 I.E.(1?0?0)
     Route: 065
  3. EZETIMIBE. [Concomitant]
     Active Substance: EZETIMIBE
     Dosage: 10 MG, QD
     Route: 065
  4. PRAVASTATIN. [Concomitant]
     Active Substance: PRAVASTATIN
     Dosage: 40 MG, QD
     Route: 065
  5. NOVORAPID [Suspect]
     Active Substance: INSULIN ASPART
     Dosage: 40 IU, QD(20 IU NOVORAPID MIDNIGHT AND 20 IU NOVORAPID IN THE MORNING AROUND 8 A.M)
     Route: 058
  6. L?THYROXIN [LEVOTHYROXINE] [Concomitant]
     Active Substance: LEVOTHYROXINE SODIUM
     Dosage: 100 ???G, QD
     Route: 065
  7. NEBIVOLOL. [Concomitant]
     Active Substance: NEBIVOLOL
     Dosage: 5 MG, QD
     Route: 065
  8. PANTOPRAZOL [PANTOPRAZOLE] [Concomitant]
     Active Substance: PANTOPRAZOLE
     Dosage: 80 MG, QD
     Route: 065
  9. DECOSTRIOL [Concomitant]
     Active Substance: CALCITRIOL
     Dosage: 0.25 ???G, QD
     Route: 065
  10. CANDESARTAN. [Concomitant]
     Active Substance: CANDESARTAN
     Dosage: 32 MG, QD
     Route: 065
  11. NOVAMINSULFON [Concomitant]
     Active Substance: METAMIZOLE
     Dosage: 500 MG(ON DEMAND)
     Route: 065
  12. TORASEMID [Concomitant]
     Active Substance: TORSEMIDE
     Dosage: 30 MG, QD(2?1?0)
     Route: 065
  13. GODAMED [Concomitant]
     Active Substance: ASPIRIN
     Dosage: 100 MG, QD
     Route: 065
  14. LECANIDIPINE [Concomitant]
     Dosage: 9.44 MG, QD
     Route: 065
  15. FLUOXETIN [Concomitant]
     Active Substance: FLUOXETINE HYDROCHLORIDE
     Dosage: 40 MG, QD
     Route: 065
  16. PRAMIPEXOLE [PRAMIPEXOLE DIHYDROCHLORIDE] [Concomitant]
     Active Substance: PRAMIPEXOLE DIHYDROCHLORIDE
     Dosage: UNK(0.7 QD)
     Route: 065
  17. MOLSIDOMIN [Concomitant]
     Active Substance: MOLSIDOMINE
     Dosage: 6 MG, QD
     Route: 065
  18. XIPAMID [Concomitant]
     Active Substance: XIPAMIDE
     Dosage: 10 MG, QD
     Route: 065
  19. SALBUHEXAL [Concomitant]
     Active Substance: ALBUTEROL
     Dosage: 100 ???G(1?2 HUB ON DEMAND)
     Route: 065

REACTIONS (6)
  - Hyperglycaemia [Recovered/Resolved]
  - General physical health deterioration [Recovered/Resolved]
  - Blood glucose increased [Unknown]
  - Chest pain [Recovered/Resolved]
  - Infusion site pain [Unknown]
  - Infusion site pruritus [Unknown]

NARRATIVE: CASE EVENT DATE: 202104
